FAERS Safety Report 13261780 (Version 2)
Quarter: 2017Q1

REPORT INFORMATION
  Report Type: Spontaneous
  Country: PT (occurrence: DK)
  Receive Date: 20170222
  Receipt Date: 20170307
  Transmission Date: 20170428
  Serious: Yes (Hospitalization)
  Sender: FDA-Public Use
  Company Number: PT-SUNOVION-2017SUN000708

PATIENT

DRUGS (28)
  1. ZEBINIX [Suspect]
     Active Substance: ESLICARBAZEPINE ACETATE
     Indication: EPILEPSY
     Dosage: UNK
     Route: 048
     Dates: start: 201206
  2. SABRILEX [Suspect]
     Active Substance: VIGABATRIN
     Indication: EPILEPSY
     Dosage: UNK
     Dates: start: 19960617
  3. LAMICTAL [Suspect]
     Active Substance: LAMOTRIGINE
     Dosage: UNK
     Dates: start: 201308
  4. VIMPAT [Suspect]
     Active Substance: LACOSAMIDE
     Indication: EPILEPSY
     Dosage: UNK
     Dates: start: 20130201
  5. ZEBINIX [Suspect]
     Active Substance: ESLICARBAZEPINE ACETATE
     Dosage: UNK
     Dates: start: 201206, end: 20130201
  6. FRISIUM [Suspect]
     Active Substance: CLOBAZAM
     Indication: EPILEPSY
     Dosage: UNK
     Route: 065
     Dates: start: 200405
  7. FENEMAL [Suspect]
     Active Substance: PHENOBARBITAL
     Indication: EPILEPSY
     Dosage: UNK
     Dates: start: 19960528
  8. APYDAN                             /00596701/ [Suspect]
     Active Substance: OXCARBAZEPINE
     Indication: EPILEPSY
     Dosage: UNK
     Dates: start: 200009
  9. DEPRAKINE                          /00228502/ [Suspect]
     Active Substance: VALPROATE SODIUM
     Indication: EPILEPSY
     Dosage: UNK
     Dates: start: 1996
  10. LYRICA [Suspect]
     Active Substance: PREGABALIN
     Indication: EPILEPSY
     Dosage: UNK
     Dates: start: 201306
  11. TRILEPTAL [Suspect]
     Active Substance: OXCARBAZEPINE
     Dosage: UNK
     Dates: start: 19960711, end: 199905
  12. STESOLID [Concomitant]
     Active Substance: DIAZEPAM
     Indication: EPILEPSY
  13. MELATONIN [Concomitant]
     Active Substance: MELATONIN
     Indication: MIDDLE INSOMNIA
     Dosage: UNK
     Dates: start: 1998
  14. LAMICTAL [Suspect]
     Active Substance: LAMOTRIGINE
     Indication: EPILEPSY
     Dosage: UNK
     Dates: start: 200203
  15. ZEBINIX [Suspect]
     Active Substance: ESLICARBAZEPINE ACETATE
     Dosage: UNK
  16. SABRILEX [Suspect]
     Active Substance: VIGABATRIN
     Dosage: UNK
     Dates: start: 2011, end: 201206
  17. KEPPRA [Suspect]
     Active Substance: LEVETIRACETAM
     Indication: EPILEPSY
     Dosage: UNK
     Dates: start: 200405
  18. INOVELON [Suspect]
     Active Substance: RUFINAMIDE
     Indication: EPILEPSY
     Dosage: UNK
     Dates: start: 201112
  19. DEPRAKINE                          /00228502/ [Suspect]
     Active Substance: VALPROATE SODIUM
     Dosage: UNK
     Dates: start: 1996, end: 19960624
  20. FRISIUM [Suspect]
     Active Substance: CLOBAZAM
     Dosage: UNK
     Dates: start: 200405
  21. SABRILEX [Suspect]
     Active Substance: VIGABATRIN
     Dosage: UNK
     Dates: start: 19960617, end: 19981204
  22. LAMICTAL [Suspect]
     Active Substance: LAMOTRIGINE
     Dosage: UNK
     Dates: start: 200405
  23. TOPIMAX                            /01201701/ [Suspect]
     Active Substance: TOPIRAMATE
     Indication: EPILEPSY
     Dosage: UNK
     Dates: end: 200405
  24. TRILEPTAL [Suspect]
     Active Substance: OXCARBAZEPINE
     Indication: EPILEPSY
     Dosage: UNK
     Dates: start: 19960711
  25. STESOLID [Concomitant]
     Active Substance: DIAZEPAM
     Indication: EPILEPSY
  26. FRISIUM [Suspect]
     Active Substance: CLOBAZAM
     Dosage: UNK
     Dates: start: 199904, end: 2002
  27. DEPRAKINE                          /00228502/ [Suspect]
     Active Substance: VALPROATE SODIUM
     Dosage: UNK
     Dates: start: 199609, end: 199803
  28. GABAPENTIN. [Suspect]
     Active Substance: GABAPENTIN
     Indication: EPILEPSY
     Dosage: UNK
     Dates: start: 19960731

REACTIONS (1)
  - Osteoporosis [Unknown]
